FAERS Safety Report 7642758-4 (Version None)
Quarter: 2011Q3

REPORT INFORMATION
  Report Type: 
  Country: None (occurrence: None)
  Receive Date: 20110728
  Receipt Date: 20110727
  Transmission Date: 20111222
  Serious: Yes (Other)
  Sender: FDA-Public Use
  Company Number: GXKR2011DE02432

PATIENT
  Age: 16 Year
  Sex: Female

DRUGS (1)
  1. METHOTREXATE [Suspect]
     Indication: MUSCULOSKELETAL PAIN
     Dosage: 10 MG, QW
     Route: 048

REACTIONS (1)
  - EPILEPSY [None]
